FAERS Safety Report 6054145-3 (Version None)
Quarter: 2009Q1

REPORT INFORMATION
  Report Type: 
  Country: None (occurrence: None)
  Receive Date: 20090127
  Receipt Date: 20090113
  Transmission Date: 20090719
  Serious: Yes (Other)
  Sender: FDA-Public Use
  Company Number: US-ELI_LILLY_AND_COMPANY-US200901001923

PATIENT
  Sex: Female

DRUGS (2)
  1. FORTEO [Suspect]
     Indication: OSTEOPOROSIS
     Dates: start: 20081101, end: 20090112
  2. TYLENOL                                 /SCH/ [Concomitant]
     Indication: MIGRAINE

REACTIONS (11)
  - ASTHENIA [None]
  - CONTUSION [None]
  - DYSPHONIA [None]
  - HEAD INJURY [None]
  - HEADACHE [None]
  - INSOMNIA [None]
  - JOINT INJURY [None]
  - LOSS OF CONSCIOUSNESS [None]
  - PAIN IN JAW [None]
  - RETCHING [None]
  - TREMOR [None]
